FAERS Safety Report 10354137 (Version 1)
Quarter: 2014Q3

REPORT INFORMATION
  Report Type: Spontaneous
  Country: US (occurrence: US)
  Receive Date: 20140731
  Receipt Date: 20140731
  Transmission Date: 20150326
  Serious: Yes (Hospitalization)
  Sender: FDA-Public Use
  Company Number: PHHY2014US092157

PATIENT
  Age: 16 Year
  Sex: Female

DRUGS (1)
  1. CARBAMAZEPINE. [Suspect]
     Active Substance: CARBAMAZEPINE
     Dosage: 20 DF, UNK

REACTIONS (11)
  - Metabolic acidosis [Unknown]
  - Toxicity to various agents [Recovering/Resolving]
  - Urine osmolarity decreased [Recovered/Resolved]
  - Dystonia [Unknown]
  - Loss of consciousness [Unknown]
  - Hypernatraemia [Recovering/Resolving]
  - Depressed level of consciousness [Unknown]
  - Blood osmolarity increased [Unknown]
  - Intentional overdose [Recovering/Resolving]
  - Drug level increased [Recovering/Resolving]
  - Diabetes insipidus [Unknown]
